FAERS Safety Report 14012585 (Version 1)
Quarter: 2017Q3

REPORT INFORMATION
  Report Type: Spontaneous
  Country: US (occurrence: US)
  Receive Date: 20170926
  Receipt Date: 20170926
  Transmission Date: 20171128
  Serious: Yes (Death, Life-Threatening, Other)
  Sender: FDA-Public Use
  Company Number: US-MEDICURE INC.-2027744

PATIENT
  Age: 78 Year
  Sex: Female

DRUGS (8)
  1. AGGRASTAT [Suspect]
     Active Substance: TIROFIBAN HYDROCHLORIDE
     Indication: ANTIPLATELET THERAPY
     Route: 040
  2. HEPARIN [Concomitant]
     Active Substance: HEPARIN SODIUM
     Route: 041
  3. HEPARIN [Concomitant]
     Active Substance: HEPARIN SODIUM
     Route: 041
  4. ASPIRIN. [Concomitant]
     Active Substance: ASPIRIN
  5. PLAVIX [Concomitant]
     Active Substance: CLOPIDOGREL BISULFATE
  6. TICAGRELOR. [Concomitant]
     Active Substance: TICAGRELOR
  7. ASPIRIN. [Concomitant]
     Active Substance: ASPIRIN
  8. 81 MG LOW DOSE ASPIRIN [Concomitant]
     Active Substance: ASPIRIN

REACTIONS (5)
  - Hypotension [Fatal]
  - Hypovolaemic shock [Fatal]
  - Chest pain [Unknown]
  - Pulseless electrical activity [Fatal]
  - Retroperitoneal haemorrhage [Fatal]
